FAERS Safety Report 4544504-X (Version None)
Quarter: 2004Q4

REPORT INFORMATION
  Report Type: 
  Country: None (occurrence: None)
  Receive Date: 20041230
  Receipt Date: 20041215
  Transmission Date: 20050328
  Serious: Yes (Hospitalization)
  Sender: FDA-Public Use
  Company Number: 2004-0007865

PATIENT
  Age: 42 Year
  Sex: Male
  Weight: 56 kg

DRUGS (4)
  1. VIREAD [Suspect]
     Indication: HIV INFECTION
     Dosage: 300 MG, 1 IN 1 D, ORAL
     Route: 048
     Dates: start: 20010315, end: 20030603
  2. EPIVIR [Concomitant]
  3. ZIAGEN [Concomitant]
  4. KALETRA [Concomitant]

REACTIONS (6)
  - GLOMERULONEPHRITIS PROLIFERATIVE [None]
  - HYPOPHOSPHATAEMIA [None]
  - NEPHRITIS INTERSTITIAL [None]
  - NEPHROANGIOSCLEROSIS [None]
  - RENAL FAILURE [None]
  - RENAL TUBULAR DISORDER [None]
